FAERS Safety Report 20891849 (Version 1)
Quarter: 2022Q2

REPORT INFORMATION
  Report Type: Spontaneous
  Country: CN (occurrence: CN)
  Receive Date: 20220530
  Receipt Date: 20220530
  Transmission Date: 20220720
  Serious: Yes (Other)
  Sender: FDA-Public Use
  Company Number: None

PATIENT
  Age: 66 Year
  Sex: Female
  Weight: 70 kg

DRUGS (4)
  1. CYCLOPHOSPHAMIDE [Suspect]
     Active Substance: CYCLOPHOSPHAMIDE
     Indication: Breast cancer female
     Dosage: 0.900000 G ONCE DAILY,0.9% NS 50ML + CYCLOPHOSPHAMIDE INJECTION 0.9 G
     Route: 041
     Dates: start: 20220421, end: 20220421
  2. SODIUM CHLORIDE [Suspect]
     Active Substance: SODIUM CHLORIDE
     Indication: Medication dilution
     Dosage: 50 ML, QD,0.9% NS INJECTION 50ML + CYCLOPHOSPHAMIDE 0.9 G
     Route: 041
     Dates: start: 20220421, end: 20220421
  3. SODIUM CHLORIDE [Suspect]
     Active Substance: SODIUM CHLORIDE
     Dosage: 250 ML, QD,DOCETAXEL INJECTION 130MG + 0.9% NS INJECTION 250ML
     Route: 041
     Dates: start: 20220421, end: 20220421
  4. DOCETAXEL [Suspect]
     Active Substance: DOCETAXEL
     Indication: Breast cancer female
     Dosage: 130.000000 MG ONCE DAILY,DOCETAXEL INJECTION 130MG + 0.9% NS INJECTION 250ML
     Route: 041
     Dates: start: 20220421, end: 20220421

REACTIONS (1)
  - Myelosuppression [Recovered/Resolved]

NARRATIVE: CASE EVENT DATE: 20220426
